FAERS Safety Report 9717790 (Version 3)
Quarter: 2014Q1

REPORT INFORMATION
  Report Type: Report from Study
  Country: US (occurrence: US)
  Receive Date: 20131127
  Receipt Date: 20140110
  Transmission Date: 20141002
  Serious: Yes (Hospitalization)
  Sender: FDA-Public Use
  Company Number: US-VIIV HEALTHCARE LIMITED-B0948454A

PATIENT
  Age: 66 Year
  Sex: Male
  Weight: 82.3 kg

DRUGS (9)
  1. MARAVIROC [Suspect]
     Indication: GRAFT VERSUS HOST DISEASE
     Dosage: 300MG TWICE PER DAY
     Route: 048
     Dates: start: 20130825, end: 20131126
  2. ACYCLOVIR [Concomitant]
     Dosage: 800MG TWICE PER DAY
     Route: 048
  3. CITALOPRAM HYDROBROMIDE [Concomitant]
     Dosage: 20MG PER DAY
     Route: 048
  4. DAPSONE [Concomitant]
     Dosage: 100MG PER DAY
     Route: 048
  5. FLUCONAZOLE [Concomitant]
     Route: 048
  6. MAGNESIUM OXIDE [Concomitant]
     Dosage: 1200MG PER DAY
     Route: 048
  7. CENTRUM SILVER [Concomitant]
     Route: 048
  8. TACROLIMUS [Concomitant]
     Dosage: .5MG TWICE PER DAY
     Route: 048
  9. TAMSULOSIN HYDROCHLORIDE [Concomitant]
     Dosage: .4MG PER DAY
     Route: 048

REACTIONS (3)
  - Anaemia [Unknown]
  - Platelet count decreased [Unknown]
  - Infection [Unknown]
